FAERS Safety Report 22011747 (Version 2)
Quarter: 2023Q1

REPORT INFORMATION
  Report Type: Report from Study
  Country: IQ (occurrence: IQ)
  Receive Date: 20230220
  Receipt Date: 20230316
  Transmission Date: 20230418
  Serious: Yes (Other)
  Sender: FDA-Public Use
  Company Number: IQ-BAYER-2022A131793

PATIENT
  Age: 70 Year
  Sex: Male

DRUGS (1)
  1. NEXAVAR [Suspect]
     Active Substance: SORAFENIB
     Indication: Thyroid cancer
     Dosage: UNK
     Dates: start: 202202

REACTIONS (5)
  - Back pain [Not Recovered/Not Resolved]
  - Pain in extremity [Not Recovered/Not Resolved]
  - Erectile dysfunction [Recovering/Resolving]
  - Rash pruritic [Recovered/Resolved]
  - Hypoaesthesia [None]

NARRATIVE: CASE EVENT DATE: 20220201
